FAERS Safety Report 5794366-8 (Version None)
Quarter: 2008Q2

REPORT INFORMATION
  Report Type: 
  Country: None (occurrence: None)
  Receive Date: 20080625
  Receipt Date: 20080610
  Transmission Date: 20081010
  Serious: Yes (Hospitalization)
  Sender: FDA-Public Use
  Company Number: 2008BI011904

PATIENT
  Age: 45 Year
  Sex: Male

DRUGS (5)
  1. TYSABRI [Suspect]
     Indication: MULTIPLE SCLEROSIS
     Dosage: 300 MG; QM; IV
     Route: 042
     Dates: start: 20061017
  2. AVONEX [Concomitant]
  3. TEMAZEPAM [Concomitant]
  4. OMEPRAZOLE [Concomitant]
  5. BACLOFEN [Concomitant]

REACTIONS (16)
  - ASPIRATION [None]
  - CARDIAC MURMUR [None]
  - COLITIS ULCERATIVE [None]
  - DRUG DOSE OMISSION [None]
  - EATING DISORDER [None]
  - ENDOCARDITIS [None]
  - HYPOTENSION [None]
  - NEUROGENIC BLADDER [None]
  - NOSOCOMIAL INFECTION [None]
  - PHARYNGEAL HAEMORRHAGE [None]
  - PNEUMONIA [None]
  - PSEUDOMONAS INFECTION [None]
  - TRIGEMINAL NEURALGIA [None]
  - URINARY TRACT INFECTION [None]
  - UROSEPSIS [None]
  - WEIGHT DECREASED [None]
